FAERS Safety Report 20127626 (Version 1)
Quarter: 2021Q4

REPORT INFORMATION
  Report Type: Spontaneous
  Country: DE (occurrence: DE)
  Receive Date: 20211129
  Receipt Date: 20211129
  Transmission Date: 20220304
  Serious: Yes (Hospitalization)
  Sender: FDA-Public Use
  Company Number: None

PATIENT
  Age: 62 Year
  Sex: Female
  Weight: 59 kg

DRUGS (5)
  1. COPAXONE [Suspect]
     Active Substance: GLATIRAMER ACETATE
     Indication: Multiple sclerosis
     Dosage: 3 / WEEK S.C. 40 MG, UNIT DOSE: 120 MG
     Route: 058
     Dates: start: 2014
  2. VITAMIN D [Concomitant]
     Active Substance: VITAMIN D NOS
     Dosage: EFFERVESCENT
  3. Ascendra [Concomitant]
     Dosage: 1 DF
  4. CALCIUM [Concomitant]
     Active Substance: CALCIUM
  5. EUTHYROX [Concomitant]
     Active Substance: LEVOTHYROXINE SODIUM
     Dosage: 75 MICROGRAM DAILY; 1-0-0, EUTHYROX 75

REACTIONS (8)
  - Hypotension [Recovered/Resolved]
  - Dizziness [Recovered/Resolved]
  - Lip swelling [Recovered/Resolved]
  - Hypersensitivity [Recovered/Resolved]
  - Application site erythema [Recovered/Resolved]
  - Paraesthesia oral [Recovered/Resolved]
  - Dyspnoea [Recovered/Resolved]
  - Flushing [Recovered/Resolved]

NARRATIVE: CASE EVENT DATE: 20210101
